FAERS Safety Report 12898951 (Version 1)
Quarter: 2016Q4

REPORT INFORMATION
  Report Type: Spontaneous
  Country: US (occurrence: US)
  Receive Date: 20161101
  Receipt Date: 20161101
  Transmission Date: 20170207
  Serious: No
  Sender: FDA-Public Use
  Company Number: US-TEVA-707377USA

PATIENT
  Age: 69 Year
  Sex: Female

DRUGS (10)
  1. FISH OIL [Concomitant]
     Active Substance: FISH OIL
     Dates: start: 20160428
  2. COPAXONE [Suspect]
     Active Substance: GLATIRAMER ACETATE
     Indication: MULTIPLE SCLEROSIS
     Route: 058
     Dates: start: 201412
  3. TRIPLE FLEX [Concomitant]
     Dates: start: 20160428
  4. FLAX SEED [Concomitant]
     Active Substance: FLAX SEED
     Dates: start: 20160428
  5. CALCIUM [Concomitant]
     Active Substance: CALCIUM
     Dosage: 3000 MILLIGRAM DAILY;
     Dates: start: 20160428
  6. IBUPROFEN. [Concomitant]
     Active Substance: IBUPROFEN
     Dates: start: 20160428
  7. MULTIPLE VIT [Concomitant]
     Dates: start: 20160428
  8. VITAMIN C [Concomitant]
     Active Substance: ASCORBIC ACID
     Dates: start: 20160428
  9. VITAMIN D3 [Concomitant]
     Active Substance: CHOLECALCIFEROL
     Dates: start: 20160428
  10. VITAMIN B COMPLEX [Concomitant]
     Active Substance: CYANOCOBALAMIN\DEXPANTHENOL\NIACINAMIDE\PYRIDOXINE HYDROCHLORIDE\RIBOFLAVIN 5^-PHOSPHATE SODIUM\THIAMINE HYDROCHLORIDE\VITAMIN B COMPLEX
     Dates: start: 20160428

REACTIONS (1)
  - Ear discomfort [Unknown]

NARRATIVE: CASE EVENT DATE: 201606
